FAERS Safety Report 9740367 (Version 2)
Quarter: 2013Q4

REPORT INFORMATION
  Report Type: Report from Study
  Country: US (occurrence: US)
  Receive Date: 20131209
  Receipt Date: 20131209
  Transmission Date: 20140711
  Serious: Yes (Hospitalization)
  Sender: FDA-Public Use
  Company Number: US-BAYER-2013-135687

PATIENT
  Age: 65 Year
  Sex: Male

DRUGS (1)
  1. XOFIGO / RADIUM RA 223 [Suspect]
     Indication: PROSTATE CANCER
     Dosage: TOTAL DAILY DOSE: 1, DOSE REGIMEN: 1, ROUTE: INFUSION
     Dates: start: 20131009

REACTIONS (1)
  - Enteritis [None]
